FAERS Safety Report 16400027 (Version 1)
Quarter: 2019Q2

REPORT INFORMATION
  Report Type: Spontaneous
  Country: US (occurrence: US)
  Receive Date: 20190606
  Receipt Date: 20190606
  Transmission Date: 20190711
  Serious: No
  Sender: FDA-Public Use
  Company Number: US-ALLERGAN-1849706US

PATIENT
  Age: 40 Year
  Sex: Male

DRUGS (2)
  1. KYBELLA [Suspect]
     Active Substance: DEOXYCHOLIC ACID
     Indication: FAT TISSUE INCREASED
     Dosage: ACTUAL: 2 VIALS; 4.0 CC SINGLE/TOTAL OF 2.0ML WITH 0.2 ML
     Route: 058
     Dates: start: 20181017, end: 20181017
  2. SKIN MARKING GRID [Concomitant]
     Indication: FAT TISSUE INCREASED

REACTIONS (2)
  - Pallor [Recovering/Resolving]
  - Hypoaesthesia oral [Recovering/Resolving]

NARRATIVE: CASE EVENT DATE: 20181017
